FAERS Safety Report 4409590-6 (Version None)
Quarter: 2004Q3

REPORT INFORMATION
  Report Type: 
  Country: None (occurrence: None)
  Receive Date: 20040723
  Receipt Date: 20040714
  Transmission Date: 20050211
  Serious: Yes (Hospitalization)
  Sender: FDA-Public Use
  Company Number: 2004223475US

PATIENT
  Sex: Female

DRUGS (1)
  1. DEPO-PROVERA [Suspect]
     Dosage: SINGLE INJECTION
     Dates: start: 20030801, end: 20030801

REACTIONS (4)
  - HYPOAESTHESIA [None]
  - METRORRHAGIA [None]
  - POLYMENORRHOEA [None]
  - VISUAL DISTURBANCE [None]
